FAERS Safety Report 13305851 (Version 1)
Quarter: 2017Q1

REPORT INFORMATION
  Report Type: Spontaneous
  Country: GB (occurrence: GB)
  Receive Date: 20170308
  Receipt Date: 20170308
  Transmission Date: 20170428
  Serious: Yes (Other)
  Sender: FDA-Public Use
  Company Number: GB-JNJFOC-20170225190

PATIENT
  Age: 79 Year
  Sex: Female
  Weight: 60.32 kg

DRUGS (6)
  1. IBUPROFEN. [Concomitant]
     Active Substance: IBUPROFEN
     Indication: PRODUCT USED FOR UNKNOWN INDICATION
     Dosage: 400 DOSES (UNIT UNSPECIFIED)
     Route: 065
     Dates: start: 20170103
  2. CETRABEN [Concomitant]
     Active Substance: PARAFFIN
     Indication: PRODUCT USED FOR UNKNOWN INDICATION
     Dosage: AS REQUIRED
     Route: 065
     Dates: start: 20160831
  3. IBUPROFEN. [Concomitant]
     Active Substance: IBUPROFEN
     Indication: PRODUCT USED FOR UNKNOWN INDICATION
     Dosage: 400 DOSES (UNIT UNSPECIFIED)
     Route: 065
     Dates: start: 20161116
  4. OMEPRAZOLE. [Concomitant]
     Active Substance: OMEPRAZOLE
     Indication: PRODUCT USED FOR UNKNOWN INDICATION
     Dosage: 20 DOSES (UNIT UNSPECIFIED),CUMULATIVE DOSE TO FIRST REACTION: 100 DOSES (UNIT UNSPECIFIED)
     Route: 065
     Dates: start: 20170103
  5. OMEPRAZOLE. [Concomitant]
     Active Substance: OMEPRAZOLE
     Indication: PRODUCT USED FOR UNKNOWN INDICATION
     Dosage: 20 DOSES (UNIT UNSPECIFIED),CUMULATIVE DOSE TO FIRST REACTION: 1060.0 DOSES (UNIT UNSPECIFIED)
     Route: 065
     Dates: start: 20161116
  6. COCODAMOL [Suspect]
     Active Substance: ACETAMINOPHEN\CODEINE PHOSPHATE
     Indication: ARTHRALGIA
     Dosage: 15 DOSES (UNIT UNSPECIFIED), 2 UP TO 4
     Route: 065
     Dates: start: 20170103

REACTIONS (2)
  - Fatigue [Recovered/Resolved]
  - Nausea [Recovering/Resolving]

NARRATIVE: CASE EVENT DATE: 20170108
